FAERS Safety Report 9671751 (Version 3)
Quarter: 2014Q1

REPORT INFORMATION
  Report Type: Spontaneous
  Country: US (occurrence: US)
  Receive Date: 20131106
  Receipt Date: 20140207
  Transmission Date: 20141002
  Serious: Yes (Other)
  Sender: FDA-Public Use
  Company Number: US-GILEAD-2013-0087082

PATIENT
  Sex: Female

DRUGS (3)
  1. LETAIRIS [Suspect]
     Indication: PULMONARY HYPERTENSION
     Dosage: 5 MG, QD
     Route: 048
     Dates: start: 20130816
  2. LETAIRIS [Suspect]
     Indication: SLEEP APNOEA SYNDROME
  3. ADCIRCA [Concomitant]

REACTIONS (2)
  - Cellulitis [Unknown]
  - Bronchitis [Unknown]
